FAERS Safety Report 11233259 (Version 3)
Quarter: 2015Q4

REPORT INFORMATION
  Report Type: Spontaneous
  Country: US (occurrence: US)
  Receive Date: 20150701
  Receipt Date: 20151006
  Transmission Date: 20160304
  Serious: Yes (Other)
  Sender: FDA-Public Use
  Company Number: US-AMGEN-USASP2015062787

PATIENT
  Age: 68 Year
  Sex: Female

DRUGS (1)
  1. PROLIA [Suspect]
     Active Substance: DENOSUMAB
     Indication: PRODUCT USED FOR UNKNOWN INDICATION
     Dosage: UNK
     Route: 065
     Dates: end: 2014

REACTIONS (6)
  - Cardiac disorder [Unknown]
  - Tooth disorder [Unknown]
  - Osteonecrosis of jaw [Unknown]
  - Pain in jaw [Unknown]
  - Off label use [Unknown]
  - Tooth extraction [Unknown]
